FAERS Safety Report 14030168 (Version 2)
Quarter: 2017Q4

REPORT INFORMATION
  Report Type: Report from Study
  Country: US (occurrence: US)
  Receive Date: 20171001
  Receipt Date: 20171028
  Transmission Date: 20180321
  Serious: Yes (Death, Hospitalization, Other)
  Sender: FDA-Public Use
  Company Number: US-AMGEN-USACT2017145002

PATIENT
  Age: 69 Year
  Sex: Female
  Weight: 71.5 kg

DRUGS (1)
  1. ROMIPLOSTIM [Suspect]
     Active Substance: ROMIPLOSTIM
     Indication: THROMBOCYTOPENIA
     Dosage: 280 MUG, QWK
     Route: 058
     Dates: start: 20170609, end: 20170914

REACTIONS (9)
  - Hepatic function abnormal [Not Recovered/Not Resolved]
  - General physical health deterioration [Unknown]
  - Fall [Unknown]
  - Blood bilirubin increased [Unknown]
  - Malignant neoplasm progression [Fatal]
  - Fracture [Unknown]
  - Pyrexia [Not Recovered/Not Resolved]
  - Neutropenic sepsis [Not Recovered/Not Resolved]
  - Hypotension [Unknown]

NARRATIVE: CASE EVENT DATE: 2017
